FAERS Safety Report 5597148-5 (Version None)
Quarter: 2007Q4

REPORT INFORMATION
  Report Type: 
  Country: None (occurrence: None)
  Receive Date: 20071221
  Receipt Date: 20071101
  Transmission Date: 20080405
  Serious: No
  Sender: FDA-Public Use
  Company Number: SPV1-2007-04809

PATIENT
  Sex: Male

DRUGS (3)
  1. VYVANSE [Suspect]
     Dosage: 50 MG, 1X/DAY:QD, ORAL ; 30 MG, 1X/DAY:QD, ORAL ; 30 MG, 1X/DAY:QD, ORAL
     Route: 048
     Dates: start: 20070101, end: 20070101
  2. VYVANSE [Suspect]
     Dosage: 50 MG, 1X/DAY:QD, ORAL ; 30 MG, 1X/DAY:QD, ORAL ; 30 MG, 1X/DAY:QD, ORAL
     Route: 048
     Dates: end: 20070101
  3. VYVANSE [Suspect]
     Dosage: 50 MG, 1X/DAY:QD, ORAL ; 30 MG, 1X/DAY:QD, ORAL ; 30 MG, 1X/DAY:QD, ORAL
     Route: 048
     Dates: start: 20070101

REACTIONS (1)
  - HYPERSOMNIA [None]
